FAERS Safety Report 9274662 (Version 1)
Quarter: 2013Q2

REPORT INFORMATION
  Report Type: Spontaneous
  Country: US (occurrence: None)
  Receive Date: 20130430
  Receipt Date: 20130430
  Transmission Date: 20140414
  Serious: Yes (Other)
  Sender: FDA-Public Use
  Company Number: None

PATIENT
  Age: 57 Year
  Sex: Male
  Weight: 165.56 kg

DRUGS (3)
  1. DESIPRAMINE [Suspect]
     Indication: DEPRESSION
     Route: 048
     Dates: start: 20110426, end: 20130425
  2. DESIPRAMINE [Suspect]
     Indication: NEUROPATHY PERIPHERAL
     Route: 048
     Dates: start: 20110426, end: 20130425
  3. DESIPRAMINE [Suspect]
     Indication: PAIN MANAGEMENT
     Route: 048
     Dates: start: 20110426, end: 20130425

REACTIONS (4)
  - Drug level below therapeutic [None]
  - Anticholinergic syndrome [None]
  - Product quality issue [None]
  - Dry mouth [None]
